FAERS Safety Report 20893071 (Version 1)
Quarter: 2022Q2

REPORT INFORMATION
  Report Type: Spontaneous
  Country: US (occurrence: US)
  Receive Date: 20220531
  Receipt Date: 20220531
  Transmission Date: 20220721
  Serious: Yes (Hospitalization)
  Sender: FDA-Public Use
  Company Number: US-BRISTOL-MYERS SQUIBB COMPANY-2022-043653

PATIENT
  Age: 70 Year
  Sex: Male
  Weight: 76.65 kg

DRUGS (1)
  1. REVLIMID [Suspect]
     Active Substance: LENALIDOMIDE
     Indication: Plasma cell myeloma
     Dosage: 2W 1 W OFF
     Route: 048
     Dates: start: 20220204

REACTIONS (2)
  - Hospitalisation [Unknown]
  - Off label use [Unknown]
